FAERS Safety Report 6018779-4 (Version None)
Quarter: 2008Q4

REPORT INFORMATION
  Report Type: 
  Country: None (occurrence: None)
  Receive Date: 20081222
  Receipt Date: 20081216
  Transmission Date: 20090506
  Serious: Yes (Death)
  Sender: FDA-Public Use
  Company Number: CLOF-1000376

PATIENT
  Age: 69 Year
  Sex: Female

DRUGS (28)
  1. CLOLAR [Suspect]
     Indication: ACUTE MYELOID LEUKAEMIA
     Dosage: 30 MG, QDX5, INTRAVENOUS
     Route: 042
     Dates: start: 20081113, end: 20081117
  2. CLOLAR [Suspect]
     Indication: ACUTE MYELOID LEUKAEMIA
     Dosage: 30 MG, QDX5, INTRAVENOUS
     Route: 042
     Dates: start: 20081126, end: 20081130
  3. CYTARABINE [Suspect]
     Indication: ACUTE MYELOID LEUKAEMIA
     Dosage: 150 MG, QD, INTRAVENOUS
     Route: 042
     Dates: start: 20081112, end: 20081118
  4. CYTARABINE [Suspect]
     Indication: ACUTE MYELOID LEUKAEMIA
     Dosage: 150 MG, QD, INTRAVENOUS
     Route: 042
     Dates: start: 20081126, end: 20081130
  5. DEXAMETHASONE [Concomitant]
  6. ACYCLOVIR [Concomitant]
  7. VORICONAZOLE [Concomitant]
  8. MOXIFLOXACIN HCL [Concomitant]
  9. HYDROCORTISONE [Concomitant]
  10. TPN [Concomitant]
  11. INSULIN [Concomitant]
  12. METOPROLOL [Concomitant]
  13. METRONIDAZOLE [Concomitant]
  14. PHYTONADIONE [Concomitant]
  15. TOBRAMYCIN [Concomitant]
  16. ACTIVASE [Concomitant]
  17. IMIPENEM [Concomitant]
  18. PROTONIX [Concomitant]
  19. DILANTIN [Concomitant]
  20. VANCOMYCIN [Concomitant]
  21. ACETAMINOPHEN [Concomitant]
  22. BENADRYL [Concomitant]
  23. SIMETHICONE (SIMETICONE) [Concomitant]
  24. ALLOPURINOL [Concomitant]
  25. BICARBONAT (SODIUM BICARBONATE) [Concomitant]
  26. ZOFRAN [Concomitant]
  27. LASIX [Concomitant]
  28. GRANULOCYTE COLONY STIMULATING FACTOR(GRANULOCYTE COLONY STIMULATING F [Concomitant]

REACTIONS (22)
  - AORTIC THROMBOSIS [None]
  - BLOOD CREATINE PHOSPHOKINASE INCREASED [None]
  - BLOOD CREATINE PHOSPHOKINASE MB INCREASED [None]
  - BLOOD CULTURE POSITIVE [None]
  - BONE MARROW FAILURE [None]
  - CARDIAC ENZYMES INCREASED [None]
  - CATHETER RELATED INFECTION [None]
  - CEREBRAL INFARCTION [None]
  - DEEP VEIN THROMBOSIS [None]
  - DIARRHOEA [None]
  - EJECTION FRACTION DECREASED [None]
  - HYPERTENSION [None]
  - HYPOTENSION [None]
  - ILEUS PARALYTIC [None]
  - MENTAL STATUS CHANGES [None]
  - PULMONARY OEDEMA [None]
  - REVERSIBLE POSTERIOR LEUKOENCEPHALOPATHY SYNDROME [None]
  - STAPHYLOCOCCAL BACTERAEMIA [None]
  - TACHYCARDIA [None]
  - TROPONIN INCREASED [None]
  - UPPER GASTROINTESTINAL HAEMORRHAGE [None]
  - WEIGHT INCREASED [None]
